FAERS Safety Report 9198540 (Version 3)
Quarter: 2013Q2

REPORT INFORMATION
  Report Type: Report from Study
  Country: GB (occurrence: GB)
  Receive Date: 20130329
  Receipt Date: 20130502
  Transmission Date: 20140414
  Serious: Yes (Hospitalization)
  Sender: FDA-Public Use
  Company Number: GB-SANOFI-AVENTIS-2013SA031615

PATIENT
  Age: 61 Year
  Sex: Female

DRUGS (8)
  1. DOCETAXEL [Suspect]
     Indication: HER-2 POSITIVE BREAST CANCER
     Route: 042
     Dates: start: 20121206
  2. TRASTUZUMAB [Suspect]
     Indication: HER-2 POSITIVE BREAST CANCER
     Dosage: LOADING DOSE
     Route: 042
     Dates: start: 20121206
  3. TRASTUZUMAB [Suspect]
     Indication: HER-2 POSITIVE BREAST CANCER
     Dosage: MAINTAINENCE DOSE
     Route: 042
  4. PLACEBO [Suspect]
     Indication: HER-2 POSITIVE BREAST CANCER
     Route: 065
  5. CARBOPLATIN [Suspect]
     Indication: HER-2 POSITIVE BREAST CANCER
     Dosage: DOSE-6AUC
     Route: 042
     Dates: start: 20121206
  6. DOMPERIDONE [Concomitant]
     Route: 065
     Dates: start: 20121206
  7. LANSOPRAZOLE [Concomitant]
     Route: 065
     Dates: start: 20121224
  8. PARACETAMOL [Concomitant]
     Route: 065

REACTIONS (1)
  - Pyrexia [Recovered/Resolved]
